FAERS Safety Report 4423012-0 (Version None)
Quarter: 2004Q3

REPORT INFORMATION
  Report Type: 
  Country: None (occurrence: None)
  Receive Date: 20040810
  Receipt Date: 20040726
  Transmission Date: 20050211
  Serious: Yes (Death, Hospitalization)
  Sender: FDA-Public Use
  Company Number: A-US2004-06977

PATIENT
  Age: 65 Year
  Sex: Male

DRUGS (1)
  1. TRACLEER [Suspect]
     Indication: PULMONARY HYPERTENSION
     Dosage: 1/2 TABLET ORAL
     Route: 048
     Dates: start: 20040724, end: 20040724

REACTIONS (1)
  - DEATH [None]
